FAERS Safety Report 25554380 (Version 1)
Quarter: 2025Q3

REPORT INFORMATION
  Report Type: Spontaneous
  Country: US (occurrence: US)
  Receive Date: 20250715
  Receipt Date: 20250715
  Transmission Date: 20251020
  Serious: No
  Sender: BAYER HEALTHCARE LLC
  Company Number: US-BAYER-2025A091108

PATIENT
  Age: 87 Year
  Sex: Female

DRUGS (7)
  1. MIRALAX [Suspect]
     Active Substance: POLYETHYLENE GLYCOL 3350
     Indication: Gastrointestinal disorder
     Dosage: ONCE A DAY DOSE
     Route: 048
  2. MIRALAX [Suspect]
     Active Substance: POLYETHYLENE GLYCOL 3350
     Indication: Abdominal pain upper
  3. MIRALAX [Suspect]
     Active Substance: POLYETHYLENE GLYCOL 3350
     Indication: Constipation
  4. DIETARY SUPPLEMENT\MAGNESIUM OXIDE [Suspect]
     Active Substance: DIETARY SUPPLEMENT\MAGNESIUM OXIDE
     Indication: Gastrointestinal disorder
     Route: 048
  5. METAMUCIL [Concomitant]
     Active Substance: PLANTAGO SEED
     Indication: Gastrointestinal disorder
     Route: 048
  6. METAMUCIL [Concomitant]
     Active Substance: PLANTAGO SEED
     Indication: Abdominal pain upper
  7. METAMUCIL [Concomitant]
     Active Substance: PLANTAGO SEED
     Indication: Constipation

REACTIONS (1)
  - Diarrhoea [Unknown]
